FAERS Safety Report 8376592-7 (Version None)
Quarter: 2012Q2

REPORT INFORMATION
  Report Type: 
  Country: None (occurrence: None)
  Receive Date: 20120522
  Receipt Date: 20120516
  Transmission Date: 20120825
  Serious: No
  Sender: FDA-Public Use
  Company Number: US-PFIZER INC-2012119410

PATIENT
  Sex: Female
  Weight: 76.644 kg

DRUGS (4)
  1. POTASSIUM [Concomitant]
     Dosage: UNK
  2. DIOVAN [Concomitant]
     Indication: HYPERTENSION
     Dosage: 80 MG, DAILY
  3. POTASSIUM PENICILLIN G [Suspect]
     Dosage: UNK
  4. HYDROCHLOROTHIAZIDE [Concomitant]
     Indication: DIURETIC THERAPY
     Dosage: 25 MG, DAILY

REACTIONS (1)
  - DRUG HYPERSENSITIVITY [None]
